FAERS Safety Report 20717671 (Version 1)
Quarter: 2022Q2

REPORT INFORMATION
  Report Type: Report from Study
  Country: US (occurrence: US)
  Receive Date: 20220417
  Receipt Date: 20220417
  Transmission Date: 20220721
  Serious: Yes (Other)
  Sender: FDA-Public Use
  Company Number: US-ABBVIE-22K-163-4350476-00

PATIENT
  Sex: Female
  Weight: 57.658 kg

DRUGS (2)
  1. HUMIRA [Suspect]
     Active Substance: ADALIMUMAB
     Indication: Crohn^s disease
     Dosage: CITRATE FREE
     Route: 058
     Dates: start: 202108
  2. INCASSIA [Concomitant]
     Active Substance: NORETHINDRONE
     Indication: Contraception

REACTIONS (13)
  - Loss of consciousness [Unknown]
  - Gastrointestinal disorder [Unknown]
  - Dizziness [Unknown]
  - Nervous system disorder [Unknown]
  - Vestibular migraine [Unknown]
  - Ear discomfort [Not Recovered/Not Resolved]
  - Rash papular [Not Recovered/Not Resolved]
  - Headache [Not Recovered/Not Resolved]
  - Hypoaesthesia [Not Recovered/Not Resolved]
  - Fall [Not Recovered/Not Resolved]
  - Rash [Recovered/Resolved]
  - Paraesthesia [Not Recovered/Not Resolved]
  - Rash [Recovered/Resolved]

NARRATIVE: CASE EVENT DATE: 20210101
